FAERS Safety Report 20141755 (Version 1)
Quarter: 2021Q4

REPORT INFORMATION
  Report Type: Report from Study
  Country: CA (occurrence: CA)
  Receive Date: 20211202
  Receipt Date: 20211202
  Transmission Date: 20220303
  Serious: Yes (Other)
  Sender: FDA-Public Use
  Company Number: CA-UCBSA-2021054937

PATIENT
  Age: 37 Year
  Sex: Female

DRUGS (1)
  1. CERTOLIZUMAB PEGOL [Suspect]
     Active Substance: CERTOLIZUMAB PEGOL
     Indication: Ankylosing spondylitis
     Dosage: 400 MILLIGRAM, EV 2 WEEKS(QOW)
     Route: 058
     Dates: start: 20211121

REACTIONS (5)
  - Chest pain [Unknown]
  - Chills [Unknown]
  - Diarrhoea [Unknown]
  - Abdominal pain upper [Unknown]
  - Nasal congestion [Unknown]

NARRATIVE: CASE EVENT DATE: 20211121
